FAERS Safety Report 16873480 (Version 7)
Quarter: 2021Q1

REPORT INFORMATION
  Report Type: Spontaneous
  Country: US (occurrence: US)
  Receive Date: 20191001
  Receipt Date: 20210129
  Transmission Date: 20210419
  Serious: No
  Sender: FDA-Public Use
  Company Number: US-PFIZER INC-2019423681

PATIENT
  Age: 62 Year
  Sex: Female
  Weight: 56.25 kg

DRUGS (2)
  1. LYRICA [Suspect]
     Active Substance: PREGABALIN
     Indication: FIBROMYALGIA
     Dosage: 150 MG, 2X/DAY
     Route: 048
  2. LYRICA [Suspect]
     Active Substance: PREGABALIN
     Dosage: 200 MG

REACTIONS (8)
  - Fibromyalgia [Not Recovered/Not Resolved]
  - Weight decreased [Unknown]
  - Memory impairment [Unknown]
  - Amnesia [Not Recovered/Not Resolved]
  - Thinking abnormal [Unknown]
  - Depression [Not Recovered/Not Resolved]
  - Anxiety [Not Recovered/Not Resolved]
  - Drug hypersensitivity [Unknown]
